FAERS Safety Report 19012284 (Version 4)
Quarter: 2021Q2

REPORT INFORMATION
  Report Type: Report from Study
  Country: JP (occurrence: JP)
  Receive Date: 20210315
  Receipt Date: 20210413
  Transmission Date: 20210717
  Serious: Yes (Hospitalization)
  Sender: FDA-Public Use
  Company Number: JP-EISAI MEDICAL RESEARCH-EC-2021-089510

PATIENT
  Age: 69 Year
  Sex: Male
  Weight: 72.9 kg

DRUGS (20)
  1. ALFACALCIDOL [Concomitant]
     Active Substance: ALFACALCIDOL
     Dates: start: 20200821, end: 20210307
  2. ADONA [Concomitant]
     Dates: start: 20210224, end: 20210306
  3. SODIUM CHLORIDE. [Concomitant]
     Active Substance: SODIUM CHLORIDE
     Dates: start: 20200821
  4. PEMBROLIZUMAB. [Suspect]
     Active Substance: PEMBROLIZUMAB
     Route: 041
     Dates: start: 20210323, end: 20210323
  5. MAGNESIUM OXIDE. [Concomitant]
     Active Substance: MAGNESIUM OXIDE
     Route: 061
     Dates: start: 201810, end: 20210307
  6. CALCIUM LACTATE [Concomitant]
     Active Substance: CALCIUM LACTATE
     Dates: start: 20200911
  7. PEMBROLIZUMAB. [Suspect]
     Active Substance: PEMBROLIZUMAB
     Indication: SQUAMOUS CELL CARCINOMA OF HEAD AND NECK
     Route: 041
     Dates: start: 20200730, end: 20210126
  8. PEMBROLIZUMAB. [Suspect]
     Active Substance: PEMBROLIZUMAB
     Route: 041
     Dates: start: 20210219, end: 20210219
  9. THYRADIN?S [Concomitant]
     Active Substance: LEVOTHYROXINE
     Dates: start: 201810
  10. URIEF [Concomitant]
     Active Substance: SILODOSIN
     Dates: start: 201810, end: 20210306
  11. LENVATINIB [Suspect]
     Active Substance: LENVATINIB
     Indication: SQUAMOUS CELL CARCINOMA OF HEAD AND NECK
     Route: 048
     Dates: start: 20200730, end: 20210306
  12. ZOLPIDEM TARTRATE TOWA [Concomitant]
     Dates: start: 201810, end: 20210306
  13. ENSURE H [Concomitant]
     Active Substance: CARBOHYDRATES\FATTY ACIDS\MINERALS\PROTEIN\VITAMINS
     Dates: start: 201810
  14. HIRUDOID [Concomitant]
     Active Substance: GLYCOSAMINOGLYCANS
     Dates: start: 20201023
  15. TAPROS [Concomitant]
     Route: 061
     Dates: start: 201701
  16. MYSER [Concomitant]
     Dates: start: 20200804, end: 20210220
  17. KERATINAMIN [Concomitant]
     Active Substance: UREA
     Dates: start: 20200814, end: 20210220
  18. KAYEXALATE [Concomitant]
     Active Substance: SODIUM POLYSTYRENE SULFONATE
     Dates: start: 20200821, end: 20210308
  19. AMLODIPINE [Concomitant]
     Active Substance: AMLODIPINE BESYLATE
     Dates: start: 20200822
  20. TRANSAMIN [Concomitant]
     Active Substance: TRANEXAMIC ACID
     Dates: start: 20210224, end: 20210306

REACTIONS (1)
  - Pulmonary haemorrhage [Recovered/Resolved]

NARRATIVE: CASE EVENT DATE: 20210306
